FAERS Safety Report 9316192 (Version 1)
Quarter: 2013Q2

REPORT INFORMATION
  Report Type: Spontaneous
  Country: DE (occurrence: DE)
  Receive Date: 20130530
  Receipt Date: 20130530
  Transmission Date: 20140414
  Serious: Yes (Other)
  Sender: FDA-Public Use
  Company Number: PHHY2013DE053210

PATIENT
  Age: 36 Year
  Sex: Female

DRUGS (16)
  1. FORADIL P [Suspect]
     Indication: BRONCHITIS
     Dosage: UNK
  2. MIFLONIDE [Suspect]
     Indication: BRONCHITIS
     Dosage: UNK
  3. VIANI [Suspect]
     Indication: BRONCHITIS
     Dosage: UNK
  4. CEFUROXIM STADA [Concomitant]
     Indication: BRONCHITIS
     Dosage: UNK
     Route: 048
  5. PENICILLIN V [Concomitant]
     Indication: BRONCHITIS
     Dosage: UNK
     Route: 048
  6. ACC [Concomitant]
     Indication: MUCOUS MEMBRANE DISORDER
     Dosage: UNK
     Route: 048
  7. BRONCHIPRET                        /01257501/ [Concomitant]
     Indication: BRONCHITIS
     Dosage: UNK
     Route: 048
  8. SINUPRET [Concomitant]
     Indication: BRONCHITIS
     Dosage: UNK
     Route: 048
  9. L-THYROXIN [Concomitant]
     Indication: HYPOTHYROIDISM
     Dosage: UNK
     Route: 048
  10. THYBON [Concomitant]
     Indication: HYPOTHYROIDISM
     Dosage: 20 UG, QD
     Route: 048
  11. TANTUM VERDE [Concomitant]
     Indication: BRONCHITIS
     Dosage: UNK
     Route: 049
  12. AMOXICILLIN [Concomitant]
     Indication: VAGINAL INFECTION
     Dosage: UNK
     Route: 048
  13. BELOC-ZOC MITE [Concomitant]
     Indication: TACHYCARDIA
     Dosage: UNK
     Route: 048
  14. NASICUR [Concomitant]
     Indication: NASOPHARYNGITIS
     Dosage: UNK
     Route: 045
  15. FOLSAEURE [Concomitant]
     Indication: PROPHYLAXIS OF NEURAL TUBE DEFECT
     Dosage: UNK
     Route: 048
  16. PENHEXAL [Concomitant]
     Indication: BRONCHITIS
     Dosage: 4.5 MIO IE
     Route: 048

REACTIONS (4)
  - Placenta praevia [Unknown]
  - Hydronephrosis [Unknown]
  - Gastric disorder [Unknown]
  - Maternal exposure during pregnancy [Unknown]
